FAERS Safety Report 23657067 (Version 4)
Quarter: 2024Q4

REPORT INFORMATION
  Report Type: Report from Study
  Country: EG (occurrence: EG)
  Receive Date: 20240321
  Receipt Date: 20241127
  Transmission Date: 20250115
  Serious: Yes (Other)
  Sender: SANDOZ
  Company Number: EG-SANDOZ-SDZ2024EG029681

PATIENT
  Age: 61 Year
  Sex: Female
  Weight: 110 kg

DRUGS (8)
  1. HYRIMOZ [Suspect]
     Active Substance: ADALIMUMAB-ADAZ
     Indication: Rheumatoid arthritis
     Dosage: 40 MG, Q2W
     Route: 058
     Dates: start: 20230529
  2. LEFLUNOMIDE [Concomitant]
     Active Substance: LEFLUNOMIDE
     Indication: Rheumatoid arthritis
     Dosage: UNK UNK, QD. START DATE - 2 YEARS AGO
     Route: 048
  3. ATOREZA [Concomitant]
     Indication: Hypertension
     Dosage: 10/10
     Route: 048
     Dates: start: 202308
  4. FOLIC ACID [Concomitant]
     Active Substance: FOLIC ACID
     Indication: Rheumatoid arthritis
     Dosage: UNK UNK, QD. START DATE - 2 YEARS AGO
     Route: 048
  5. GAPTIN [Concomitant]
     Indication: Rheumatoid arthritis
     Dosage: UNK UNK, QD. START DATE - 2 YEARS AGO
     Route: 048
  6. GAPTIN [Concomitant]
     Indication: Neuritis
  7. GLIPTUS PLUS [Concomitant]
     Indication: Diabetes mellitus
     Dosage: 50/1000
     Route: 048
     Dates: start: 202308
  8. METHOTREXATE [Concomitant]
     Active Substance: METHOTREXATE
     Indication: Rheumatoid arthritis
     Route: 030

REACTIONS (8)
  - Diabetes mellitus [Not Recovered/Not Resolved]
  - Hypertension [Not Recovered/Not Resolved]
  - Vitamin D deficiency [Unknown]
  - Calcium deficiency [Unknown]
  - Hepatic enzyme increased [Unknown]
  - Herpes zoster [Not Recovered/Not Resolved]
  - Product availability issue [Not Recovered/Not Resolved]
  - Product dose omission issue [Unknown]

NARRATIVE: CASE EVENT DATE: 20230801
